FAERS Safety Report 5681116-9 (Version None)
Quarter: 2008Q1

REPORT INFORMATION
  Report Type: 
  Country: None (occurrence: None)
  Receive Date: 20080325
  Receipt Date: 20080310
  Transmission Date: 20080703
  Serious: Yes (Death, Hospitalization)
  Sender: FDA-Public Use
  Company Number: 2008000551

PATIENT
  Age: 66 Year
  Sex: Female

DRUGS (14)
  1. ERLOTINIB (ERLOTINIB HC1) (TABLET) (ERLOTINIB HC1) [Suspect]
     Indication: GASTROINTESTINAL CARCINOMA
     Dosage: 150 MG, QD, ORAL
     Route: 048
     Dates: start: 20070410, end: 20070606
  2. BEVACIZUMAB (INJECTION FOR INFUSION) [Suspect]
     Indication: GASTROINTESTINAL CARCINOMA
     Dosage: 590 MG, Q2WEEK, INTRAVENOUS
     Route: 042
     Dates: start: 20070410, end: 20070606
  3. CONTALGIN (MORPHINE SULFATE) [Concomitant]
  4. DURAGESIC-100 [Concomitant]
  5. IMOZOP (ZOPICLONE) [Concomitant]
  6. MOTRIN [Concomitant]
  7. OMEPRAZOLE [Concomitant]
  8. MOVICOL (NULYTELY( [Concomitant]
  9. TRADOLAN (TRAMADOL HYDROCHLORIDE) [Concomitant]
  10. METADON (METHASONE HYDROCHLORIDE) [Concomitant]
  11. PINEX (PARACETAMOL) [Concomitant]
  12. PREDNISOLONE [Concomitant]
  13. ZYPREXA [Concomitant]
  14. SERENASE (HALOPERIDOL) [Concomitant]

REACTIONS (6)
  - CONFUSIONAL STATE [None]
  - DEHYDRATION [None]
  - GENERAL PHYSICAL HEALTH DETERIORATION [None]
  - PULMONARY OEDEMA [None]
  - PYREXIA [None]
  - SOMNOLENCE [None]
